FAERS Safety Report 7984012-7 (Version None)
Quarter: 2011Q4

REPORT INFORMATION
  Report Type: 
  Country: None (occurrence: None)
  Receive Date: 20111216
  Receipt Date: 20111214
  Transmission Date: 20120403
  Serious: Yes (Other)
  Sender: FDA-Public Use
  Company Number: US-PFIZER INC-2011305105

PATIENT
  Sex: Female

DRUGS (4)
  1. CHANTIX [Suspect]
     Dosage: UNK
  2. CHANTIX [Suspect]
     Dosage: UNK
     Dates: start: 20110101, end: 20110101
  3. DIOVAN [Suspect]
     Dosage: UNK
  4. WELLBUTRIN [Concomitant]
     Dosage: UNK

REACTIONS (3)
  - DEPRESSION [None]
  - MENTAL IMPAIRMENT [None]
  - FEELING ABNORMAL [None]
